FAERS Safety Report 16397313 (Version 1)
Quarter: 2019Q2

REPORT INFORMATION
  Report Type: Spontaneous
  Country: DE (occurrence: DE)
  Receive Date: 20190606
  Receipt Date: 20190606
  Transmission Date: 20190711
  Serious: Yes (Hospitalization, Other)
  Sender: FDA-Public Use
  Company Number: DE-AUROBINDO-AUR-APL-2018-018887

PATIENT

DRUGS (8)
  1. PERTUZUMAB. [Suspect]
     Active Substance: PERTUZUMAB
     Indication: HER-2 POSITIVE BREAST CANCER
     Dosage: 420 MILLIGRAM, 3WEEK
     Route: 042
     Dates: start: 20170208
  2. LETROZOLE. [Suspect]
     Active Substance: LETROZOLE
     Indication: BREAST CANCER METASTATIC
     Dosage: 2.5 MILLIGRAM/KILOGRAM, ONCE A DAY
     Route: 048
     Dates: start: 20170208
  3. PERTUZUMAB. [Suspect]
     Active Substance: PERTUZUMAB
     Dosage: UNK
     Route: 042
     Dates: start: 20180424
  4. TRASTUZUMAB. [Suspect]
     Active Substance: TRASTUZUMAB
     Indication: HER-2 POSITIVE BREAST CANCER
     Dosage: 6 MILLIGRAM/KILOGRAM, 3 WEEK
     Route: 065
     Dates: start: 20170208
  5. TRASTUZUMAB. [Suspect]
     Active Substance: TRASTUZUMAB
     Dosage: UNK
     Route: 042
     Dates: start: 20180424
  6. TRASTUZUMAB. [Suspect]
     Active Substance: TRASTUZUMAB
     Dosage: 252 MILLIGRAM, 3 WEEK
     Route: 042
     Dates: start: 20170208
  7. DOCETAXEL. [Suspect]
     Active Substance: DOCETAXEL
     Indication: HER-2 POSITIVE BREAST CANCER
     Dosage: UNK, 3 WEEK
     Route: 065
  8. LETROZOLE. [Suspect]
     Active Substance: LETROZOLE
     Dosage: UNK
     Route: 048
     Dates: start: 20180329

REACTIONS (12)
  - Gamma-glutamyltransferase increased [Unknown]
  - Aspartate aminotransferase increased [Unknown]
  - Metastases to central nervous system [Unknown]
  - Gastritis [Recovered/Resolved]
  - Alanine aminotransferase increased [Unknown]
  - Pain [Unknown]
  - Neuropathy peripheral [Unknown]
  - Headache [Not Recovered/Not Resolved]
  - Fatigue [Unknown]
  - Insomnia [Unknown]
  - Nausea [Not Recovered/Not Resolved]
  - Arthralgia [Unknown]

NARRATIVE: CASE EVENT DATE: 20170208
